FAERS Safety Report 8264779-3 (Version None)
Quarter: 2012Q2

REPORT INFORMATION
  Report Type: 
  Country: None (occurrence: None)
  Receive Date: 20120406
  Receipt Date: 20120329
  Transmission Date: 20120825
  Serious: Yes (Other)
  Sender: FDA-Public Use
  Company Number: JP-JNJFOC-20120304901

PATIENT
  Age: 4 Year
  Sex: Female

DRUGS (5)
  1. AN UNKNOWN MEDICATION [Suspect]
     Indication: DIARRHOEA
     Route: 065
  2. RACOL [Suspect]
     Indication: DIARRHOEA
     Route: 065
  3. LOPERAMIDE HCL [Suspect]
     Indication: DIARRHOEA
     Route: 048
  4. ALBUMIN TANNATE [Suspect]
     Indication: DIARRHOEA
     Route: 065
  5. TPN [Suspect]
     Indication: DIARRHOEA
     Route: 065

REACTIONS (3)
  - HAEMATOCHEZIA [None]
  - DIARRHOEA [None]
  - ABDOMINAL DISTENSION [None]
